FAERS Safety Report 6213181-4 (Version None)
Quarter: 2009Q2

REPORT INFORMATION
  Report Type: 
  Country: None (occurrence: None)
  Receive Date: 20090602
  Receipt Date: 20090602
  Transmission Date: 20091009
  Serious: Yes (Hospitalization, Other)
  Sender: FDA-Public Use
  Company Number: None

PATIENT
  Age: 58 Year
  Sex: Male
  Weight: 104.3273 kg

DRUGS (20)
  1. CELEBREX [Suspect]
     Indication: ARTHRALGIA
     Dosage: 200 MG ONE DAILY PO
     Route: 048
     Dates: start: 20081216, end: 20090304
  2. CELEBREX [Suspect]
     Indication: ARTHRITIS
     Dosage: 200 MG ONE DAILY PO
     Route: 048
     Dates: start: 20081216, end: 20090304
  3. SOMA [Concomitant]
  4. VICODIN ES [Concomitant]
  5. VALIUM [Concomitant]
  6. XANAX [Concomitant]
  7. FOLIC ACID [Concomitant]
  8. ASPIRIN [Concomitant]
  9. LISINOPRIL [Concomitant]
  10. ALDACTONE [Concomitant]
  11. SYNTHROID [Concomitant]
  12. KLOR-CON [Concomitant]
  13. NITROGLYCERIN [Concomitant]
  14. PROTONIX [Concomitant]
  15. NIACIN [Concomitant]
  16. LIPITOR [Concomitant]
  17. PLAVIX [Concomitant]
  18. CALCIUM/MAGNIZIUM [Concomitant]
  19. ZINC [Concomitant]
  20. ASCORBIC ACID [Concomitant]

REACTIONS (1)
  - CEREBROVASCULAR ACCIDENT [None]
